FAERS Safety Report 18973538 (Version 1)
Quarter: 2021Q1

REPORT INFORMATION
  Report Type: Spontaneous
  Country: CN (occurrence: CN)
  Receive Date: 20210305
  Receipt Date: 20210305
  Transmission Date: 20210420
  Serious: Yes (Other)
  Sender: FDA-Public Use
  Company Number: CN-PFIZER INC-2021218370

PATIENT
  Age: 47 Year
  Sex: Female
  Weight: 46 kg

DRUGS (4)
  1. OU BEI [Concomitant]
     Indication: PROPHYLAXIS
     Dosage: 8 MG, 1X/DAY
     Route: 048
     Dates: start: 20210221, end: 20210221
  2. DEXAMETHASONE ACETATE [Concomitant]
     Active Substance: DEXAMETHASONE ACETATE
     Indication: PROPHYLAXIS
     Dosage: 12 MG, 1X/DAY
     Route: 048
     Dates: start: 20210221, end: 20210221
  3. AO WEI JIA [Concomitant]
     Indication: THERAPEUTIC PROCEDURE
     Dosage: 30 MG, 1X/DAY
     Route: 041
     Dates: start: 20210221, end: 20210221
  4. ANZATAX (PACLITAXEL) [Suspect]
     Active Substance: PACLITAXEL
     Indication: SARCOMA UTERUS
     Dosage: 30 MG, 1X/DAY
     Route: 041
     Dates: start: 20210221, end: 20210221

REACTIONS (4)
  - Palpitations [Recovering/Resolving]
  - Chest discomfort [Recovering/Resolving]
  - Off label use [Unknown]
  - Flushing [Recovering/Resolving]

NARRATIVE: CASE EVENT DATE: 20210221
